FAERS Safety Report 9220225 (Version 1)
Quarter: 2013Q1

REPORT INFORMATION
  Report Type: Spontaneous
  Country: US (occurrence: None)
  Receive Date: 20120830
  Receipt Date: 20120830
  Transmission Date: 20140127
  Serious: Yes (Other)
  Sender: FDA-Public Use
  Company Number: US018338

PATIENT
  Age: 18 Year
  Sex: Female
  Weight: 52 kg

DRUGS (3)
  1. GABITRIL ( TIAGABINE) [Suspect]
     Indication: COMPLEX PARTIAL SEIZURES
     Dosage: 8 MG ( 4 MG, 2 IN 1 D), ORAL
     Route: 048
     Dates: start: 200608
  2. ZONEGRAN [Concomitant]
  3. TEGRETOL XR [Concomitant]

REACTIONS (2)
  - Convulsion [None]
  - Abdominal pain upper [None]
